FAERS Safety Report 5958756-2 (Version None)
Quarter: 2008Q4

REPORT INFORMATION
  Report Type: 
  Country: None (occurrence: None)
  Receive Date: 20081119
  Receipt Date: 20081106
  Transmission Date: 20090506
  Serious: Yes (Hospitalization)
  Sender: FDA-Public Use
  Company Number: DE-ABBOTT-08P-062-0488336-00

PATIENT
  Age: 70 Year
  Sex: Male

DRUGS (5)
  1. HUMIRA [Suspect]
     Indication: PSORIATIC ARTHROPATHY
     Dates: start: 20080310
  2. METHOTREXATE [Concomitant]
     Indication: PSORIATIC ARTHROPATHY
  3. CYCLOSPORINE [Concomitant]
     Indication: PSORIATIC ARTHROPATHY
  4. ETANERCEPT [Concomitant]
     Indication: PSORIATIC ARTHROPATHY
  5. FUMARSAURE [Concomitant]
     Indication: PSORIATIC ARTHROPATHY

REACTIONS (1)
  - OESOPHAGEAL CARCINOMA [None]
